FAERS Safety Report 7288055-0 (Version None)
Quarter: 2011Q1

REPORT INFORMATION
  Report Type: 
  Country: None (occurrence: None)
  Receive Date: 20110211
  Receipt Date: 20110207
  Transmission Date: 20110831
  Serious: Yes (Death)
  Sender: FDA-Public Use
  Company Number: PHHY2011US10006

PATIENT
  Age: 21 Month
  Sex: Male

DRUGS (10)
  1. ETOPOSIDE [Concomitant]
  2. CYCLOSPORINE [Suspect]
     Indication: CORD BLOOD TRANSPLANT THERAPY
  3. DAUNORUBICIN HCL [Concomitant]
  4. CYTARABINE [Concomitant]
  5. PREDNISONE [Concomitant]
  6. BUSULFAN [Concomitant]
  7. CYCLOPHOSPHAMIDE [Concomitant]
  8. MYCOPHENOLATE MOFETIL [Concomitant]
     Indication: PROPHYLAXIS AGAINST GRAFT VERSUS HOST DISEASE
  9. LASIX [Concomitant]
  10. TACROLIMUS [Concomitant]
     Indication: PROPHYLAXIS AGAINST GRAFT VERSUS HOST DISEASE

REACTIONS (4)
  - COUGH [None]
  - MICROANGIOPATHY [None]
  - ACUTE RESPIRATORY DISTRESS SYNDROME [None]
  - HYPOXIA [None]
